FAERS Safety Report 15062100 (Version 1)
Quarter: 2018Q2

REPORT INFORMATION
  Report Type: Spontaneous
  Country: IN (occurrence: IN)
  Receive Date: 20180625
  Receipt Date: 20180625
  Transmission Date: 20180711
  Serious: Yes (Death, Hospitalization, Other)
  Sender: FDA-Public Use
  Company Number: IN-TOLMAR, INC.-TOLG20180339

PATIENT
  Age: 4 Month
  Sex: Male

DRUGS (1)
  1. LEVETIRACETAM. [Suspect]
     Active Substance: LEVETIRACETAM
     Indication: SEIZURE
     Dosage: 20 MG/KG/DAY
     Route: 065

REACTIONS (15)
  - Grunting [Unknown]
  - Peripheral swelling [Unknown]
  - Pancytopenia [Fatal]
  - Shock [Unknown]
  - Abdominal distension [Unknown]
  - Pneumonia [Fatal]
  - Use of accessory respiratory muscles [Unknown]
  - Multiple organ dysfunction syndrome [Fatal]
  - Lethargy [Unknown]
  - Umbilical hernia [Unknown]
  - Septic shock [Fatal]
  - Acute kidney injury [Unknown]
  - Oedema [Unknown]
  - Rales [Unknown]
  - Hyponatraemia [Unknown]
